FAERS Safety Report 4624431-X (Version None)
Quarter: 2005Q1

REPORT INFORMATION
  Report Type: 
  Country: None (occurrence: None)
  Receive Date: 20050330
  Receipt Date: 20050330
  Transmission Date: 20050727
  Serious: Yes (Hospitalization)
  Sender: FDA-Public Use
  Company Number: None

PATIENT
  Sex: Female
  Weight: 99.3377 kg

DRUGS (1)
  1. OXAPROZIN [Suspect]
     Indication: FIBROMYALGIA
     Dosage: 1200MG  DAILY   ORAL
     Route: 048

REACTIONS (1)
  - FEBRILE NEUTROPENIA [None]
